FAERS Safety Report 12118366 (Version 1)
Quarter: 2016Q1

REPORT INFORMATION
  Report Type: Spontaneous
  Country: US (occurrence: None)
  Receive Date: 20160224
  Receipt Date: 20160224
  Transmission Date: 20160526
  Serious: No
  Sender: FDA-Public Use
  Company Number: None

PATIENT
  Age: 86 Year
  Sex: Female
  Weight: 49.9 kg

DRUGS (5)
  1. ZOLPIDEM [Concomitant]
     Active Substance: ZOLPIDEM\ZOLPIDEM TARTRATE
  2. CALCIUM [Concomitant]
     Active Substance: CALCIUM
  3. ACETAZOLAMIDE. [Suspect]
     Active Substance: ACETAZOLAMIDE
     Indication: GLAUCOMA
     Dosage: 1 PILL
     Route: 048
     Dates: start: 201312
  4. DIAZEPAM. [Concomitant]
     Active Substance: DIAZEPAM
  5. VITAMIN D [Concomitant]
     Active Substance: CHOLECALCIFEROL

REACTIONS (6)
  - Fatigue [None]
  - Feeling cold [None]
  - Asthenia [None]
  - Rhinorrhoea [None]
  - Listless [None]
  - Constipation [None]
